FAERS Safety Report 4837405-0 (Version None)
Quarter: 2005Q4

REPORT INFORMATION
  Report Type: 
  Country: None (occurrence: None)
  Receive Date: 20051122
  Receipt Date: 20051104
  Transmission Date: 20060501
  Serious: Yes (Life-Threatening, Hospitalization)
  Sender: FDA-Public Use
  Company Number: DSA_27361_2005

PATIENT
  Age: 40 Year
  Sex: Female

DRUGS (4)
  1. TEMESTA [Suspect]
     Indication: BIPOLAR I DISORDER
     Dosage: 5 MG ONCE SL
     Route: 060
     Dates: start: 20051015, end: 20051015
  2. HALDOL [Suspect]
     Indication: HYPOMANIA
     Dosage: 5 MG ONCE IM
     Route: 030
     Dates: start: 20051015, end: 20051015
  3. PRAZINE [Suspect]
     Indication: AGITATION
     Dosage: 50 MG ONCE PO
     Route: 048
     Dates: start: 20051015, end: 20051015
  4. TALOFEN [Suspect]
     Indication: HYPOMANIA
     Dosage: 100 MG ONCE IM
     Route: 030
     Dates: start: 20051015, end: 20051015

REACTIONS (6)
  - AGITATION [None]
  - BLOOD PRESSURE DECREASED [None]
  - CYANOSIS [None]
  - HYPERCAPNIA [None]
  - LOSS OF CONSCIOUSNESS [None]
  - RESPIRATORY FAILURE [None]
